FAERS Safety Report 5968638-8 (Version None)
Quarter: 2008Q4

REPORT INFORMATION
  Report Type: 
  Country: None (occurrence: None)
  Receive Date: 20081126
  Receipt Date: 20081117
  Transmission Date: 20090506
  Serious: Yes (Disabling)
  Sender: FDA-Public Use
  Company Number: GB-ROCHE-597664

PATIENT
  Age: 73 Year
  Sex: Female
  Weight: 67 kg

DRUGS (6)
  1. BONIVA [Suspect]
     Indication: OSTEOPOROSIS
     Route: 042
     Dates: start: 20081009
  2. CALCICHEW D3 [Concomitant]
     Route: 048
  3. CO-AMILOFRUSE [Concomitant]
     Route: 048
  4. LANSOPRAZOLE [Concomitant]
     Route: 048
  5. LOSARTAN POTASSIUM [Concomitant]
     Route: 048
  6. WARFARIN SODIUM [Concomitant]
     Route: 048

REACTIONS (2)
  - BEDRIDDEN [None]
  - PAIN [None]
